FAERS Safety Report 7584795-4 (Version None)
Quarter: 2011Q2

REPORT INFORMATION
  Report Type: 
  Country: None (occurrence: None)
  Receive Date: 20110630
  Receipt Date: 20110620
  Transmission Date: 20111010
  Serious: Yes (Other)
  Sender: FDA-Public Use
  Company Number: PHHY2011US20347

PATIENT
  Sex: Male
  Weight: 96 kg

DRUGS (6)
  1. TASIGNA [Suspect]
     Indication: CHRONIC MYELOID LEUKAEMIA
     Dosage: 400 MG, BID
     Route: 048
     Dates: start: 20110121, end: 20110310
  2. ALBUTEROL SULFATE AUTOHALER [Concomitant]
     Dosage: 90 UG AEROSOL SOLUTION
  3. ADVAIR DISKUS 100/50 [Concomitant]
  4. AMBIEN [Concomitant]
     Indication: INSOMNIA
     Dosage: 5 MG, UNK
     Route: 048
     Dates: start: 20110316
  5. TASIGNA [Suspect]
     Dosage: 400 MG PER DAY
     Route: 048
     Dates: start: 20110331
  6. SINGULAIR [Concomitant]
     Dosage: 10 MG DAILY
     Route: 048

REACTIONS (7)
  - HEPATIC ENZYME INCREASED [None]
  - ASPARTATE AMINOTRANSFERASE INCREASED [None]
  - BLOOD BILIRUBIN INCREASED [None]
  - ALANINE AMINOTRANSFERASE INCREASED [None]
  - MUSCLE SPASMS [None]
  - MYALGIA [None]
  - ACNE [None]
